FAERS Safety Report 8507536-2 (Version None)
Quarter: 2012Q3

REPORT INFORMATION
  Report Type: 
  Country: None (occurrence: None)
  Receive Date: 20120713
  Receipt Date: 20120711
  Transmission Date: 20120928
  Serious: Yes (Hospitalization)
  Sender: FDA-Public Use
  Company Number: CN-BAYER-2012-069120

PATIENT
  Age: 83 Year
  Sex: Male
  Weight: 52 kg

DRUGS (7)
  1. ASPIRIN [Suspect]
     Indication: PLATELET DISORDER
     Dosage: 0.1 G, QD
     Route: 048
     Dates: start: 20111101, end: 20111108
  2. LANSOPRAZOLE [Concomitant]
  3. SHUXUENING [Concomitant]
  4. METHYLCOBALAMINE W/THIOCTIC ACID [Concomitant]
  5. CEFTAZIDIME [Concomitant]
  6. CEREBROPROTEIN HYDROLYSATE [Concomitant]
  7. OXIRACETAM [Concomitant]

REACTIONS (1)
  - ERYTHEMA MULTIFORME [None]
